FAERS Safety Report 15231439 (Version 1)
Quarter: 2018Q3

REPORT INFORMATION
  Report Type: Report from Study
  Country: GB (occurrence: GB)
  Receive Date: 20180802
  Receipt Date: 20180802
  Transmission Date: 20181010
  Serious: Yes (Hospitalization)
  Sender: FDA-Public Use
  Company Number: PHHY2018GB057049

PATIENT
  Sex: Male

DRUGS (2)
  1. GABAPENTIN. [Concomitant]
     Active Substance: GABAPENTIN
     Indication: PRODUCT USED FOR UNKNOWN INDICATION
     Route: 065
  2. COSENTYX [Suspect]
     Active Substance: SECUKINUMAB
     Indication: PSORIATIC ARTHROPATHY
     Dosage: 300 MG, QW (ON WEEKS 0,1,2,3 THEN ONCE MONTHLY)
     Route: 058
     Dates: start: 20180512, end: 201805

REACTIONS (5)
  - Abdominal pain upper [Not Recovered/Not Resolved]
  - Sepsis [Unknown]
  - Pyrexia [Unknown]
  - Weight decreased [Unknown]
  - White blood cell count increased [Unknown]
